FAERS Safety Report 12777180 (Version 1)
Quarter: 2016Q3

REPORT INFORMATION
  Report Type: Spontaneous
  Country: US (occurrence: US)
  Receive Date: 20160924
  Receipt Date: 20160924
  Transmission Date: 20161109
  Serious: No
  Sender: FDA-Public Use
  Company Number: US-BRISTOL-MYERS SQUIBB COMPANY-BMS-2016-078337

PATIENT
  Age: 25 Year
  Sex: Male

DRUGS (2)
  1. SPRYCEL [Suspect]
     Active Substance: DASATINIB
     Indication: PRODUCT USED FOR UNKNOWN INDICATION
     Dosage: 50 MG, QD
     Route: 048
     Dates: start: 20160811
  2. SPRYCEL [Suspect]
     Active Substance: DASATINIB
     Dosage: 20 MG, QD
     Route: 048
     Dates: end: 2016

REACTIONS (2)
  - Liver function test increased [Unknown]
  - Off label use [Unknown]
